FAERS Safety Report 26199345 (Version 1)
Quarter: 2025Q4

REPORT INFORMATION
  Report Type: Spontaneous
  Country: GB (occurrence: GB)
  Receive Date: 20251225
  Receipt Date: 20251225
  Transmission Date: 20260117
  Serious: Yes (Other)
  Sender: DEXCEL LTD.
  Company Number: None

PATIENT
  Age: 71 Year
  Sex: Female
  Weight: 64 kg

DRUGS (8)
  1. ACETIC ACID\DEXAMETHASONE\NEOMYCIN SULFATE [Suspect]
     Active Substance: ACETIC ACID\DEXAMETHASONE\NEOMYCIN SULFATE
     Dosage: NEOMYCIN 0.5%
  2. ACETIC ACID\DEXAMETHASONE\NEOMYCIN SULFATE [Suspect]
     Active Substance: ACETIC ACID\DEXAMETHASONE\NEOMYCIN SULFATE
     Dosage: DEXAMETHASONE  0.1%?ONE SPRAY THREE TIMES DAILY
     Dates: start: 20251114, end: 20251121
  3. CYANOCOBALAMIN [Concomitant]
     Active Substance: CYANOCOBALAMIN
     Dosage: ONE DAILY
     Dates: start: 20250528
  4. HYLO-TEAR [Concomitant]
     Dosage: USE AS DIRECTED
     Dates: start: 20250528
  5. NAPROXEN [Concomitant]
     Active Substance: NAPROXEN
     Dosage: TAKE ONE TWICE DAILY
     Dates: start: 20250528
  6. OMEPRAZOLEOMEPRAZOLE (Specific Substance SUB722) [Concomitant]
     Dosage: TAKE ONE DAILY WHILST TAKING NAPROXEN
     Dates: start: 20250528
  7. ESTRIOL [Concomitant]
     Active Substance: ESTRIOL
     Dosage: APPLY AT NIGHT FOR 2 WEEKS THEN TWICE WEEKLY FO...
     Dates: start: 20250715
  8. ACETIC ACID\DEXAMETHASONE\NEOMYCIN SULFATE [Suspect]
     Active Substance: ACETIC ACID\DEXAMETHASONE\NEOMYCIN SULFATE
     Dosage: ACETIC ACID (GLACIAL) 2%

REACTIONS (3)
  - Malaise [Unknown]
  - Palpitations [Recovered/Resolved]
  - Tachycardia [Unknown]
